FAERS Safety Report 7932906-0 (Version None)
Quarter: 2011Q4

REPORT INFORMATION
  Report Type: 
  Country: None (occurrence: None)
  Receive Date: 20111122
  Receipt Date: 20111116
  Transmission Date: 20120403
  Serious: No
  Sender: FDA-Public Use
  Company Number: US-PFIZER INC-2011281931

PATIENT

DRUGS (1)
  1. PROSTIN VR PEDIATRIC [Suspect]
     Dosage: UNK

REACTIONS (1)
  - BLOOD SODIUM INCREASED [None]
